FAERS Safety Report 20601581 (Version 1)
Quarter: 2022Q1

REPORT INFORMATION
  Report Type: Report from Study
  Country: US (occurrence: US)
  Receive Date: 20220316
  Receipt Date: 20220316
  Transmission Date: 20220423
  Serious: Yes (Other)
  Sender: FDA-Public Use
  Company Number: US-Ipsen Biopharmaceuticals, Inc.-2022-07012

PATIENT
  Age: 75 Year
  Sex: Female

DRUGS (1)
  1. SOMATULINE DEPOT [Suspect]
     Active Substance: LANREOTIDE ACETATE
     Indication: Carcinoid tumour
     Dosage: 120MG
     Route: 058

REACTIONS (5)
  - Deep vein thrombosis [Recovering/Resolving]
  - Malaise [Recovering/Resolving]
  - Back pain [Recovering/Resolving]
  - Arthralgia [Recovering/Resolving]
  - Diarrhoea [Recovering/Resolving]

NARRATIVE: CASE EVENT DATE: 20220101
